FAERS Safety Report 24109099 (Version 1)
Quarter: 2024Q3

REPORT INFORMATION
  Report Type: Spontaneous
  Country: GB (occurrence: GB)
  Receive Date: 20240718
  Receipt Date: 20240718
  Transmission Date: 20241017
  Serious: Yes (Disabling)
  Sender: ACCORD
  Company Number: None

PATIENT
  Age: 76 Year
  Sex: Female
  Weight: 67 kg

DRUGS (9)
  1. ATORVASTATIN [Suspect]
     Active Substance: ATORVASTATIN
     Indication: Product used for unknown indication
     Dosage: IN THE EVENING?STRENGTH: 20 MG
     Dates: start: 20240513
  2. ATENOLOL [Concomitant]
     Active Substance: ATENOLOL
     Dosage: TAKE ONE TABLET ONCE A DAY
     Dates: start: 20231201
  3. LANSOPRAZOLE [Concomitant]
     Active Substance: LANSOPRAZOLE
     Dosage: TAKE ONE CAPSULE ONCE A DAY
     Dates: start: 20240424
  4. AMLODIPINE [Concomitant]
     Active Substance: AMLODIPINE BESYLATE
     Dosage: TAKE ONE DAILY
     Dates: start: 20231201
  5. CETRABEN [Concomitant]
     Dosage: USE AS DIRECTED
     Dates: start: 20231201
  6. HYALURONATE SODIUM [Concomitant]
     Active Substance: HYALURONATE SODIUM
     Dosage: 1 DROP TDS PRN AND  AT BEDTIME
     Dates: start: 20231201
  7. SENNA [Concomitant]
     Active Substance: SENNA LEAF\SENNOSIDES\SENNOSIDES A AND B
     Dosage: TAKE  2 AT NIGHT WHEN REQUIRED
     Dates: start: 20231201
  8. ESTRIOL [Concomitant]
     Active Substance: ESTRIOL
     Dosage: APPLY AT NIGHT
     Dates: start: 20231221
  9. XAILIN NIGHT [Concomitant]
     Dosage: APPLY TO DRY EYES WHEN NEEDED
     Dates: start: 20240227

REACTIONS (2)
  - Nausea [Recovered/Resolved]
  - Headache [Recovered/Resolved]

NARRATIVE: CASE EVENT DATE: 20240624
